FAERS Safety Report 5220803-3 (Version None)
Quarter: 2007Q1

REPORT INFORMATION
  Report Type: 
  Country: None (occurrence: None)
  Receive Date: 20070126
  Receipt Date: 20070117
  Transmission Date: 20070707
  Serious: Yes (Other)
  Sender: FDA-Public Use
  Company Number: PHNU2005DE00773

PATIENT
  Sex: Female

DRUGS (2)
  1. ZOMETA [Suspect]
     Indication: CERVIX CARCINOMA
     Dosage: 1 DF, QW
     Route: 042
     Dates: start: 20030101, end: 20050301
  2. AREDIA [Suspect]
     Indication: CERVIX CARCINOMA
     Route: 042
     Dates: end: 20050301

REACTIONS (7)
  - FISTULA [None]
  - JAW OPERATION [None]
  - OSTEITIS [None]
  - OSTEONECROSIS [None]
  - PRIMARY SEQUESTRUM [None]
  - TOOTH EXTRACTION [None]
  - WOUND DEBRIDEMENT [None]
